FAERS Safety Report 22070820 (Version 2)
Quarter: 2023Q1

REPORT INFORMATION
  Report Type: Spontaneous
  Country: GB (occurrence: GB)
  Receive Date: 20230307
  Receipt Date: 20230314
  Transmission Date: 20230418
  Serious: Yes (Disabling, Other)
  Sender: FDA-Public Use
  Company Number: GB-MHRA-MED-202302240910354740-BGQFM

PATIENT
  Age: 43 Year
  Sex: Female
  Weight: 63 kg

DRUGS (1)
  1. LEVOFLOXACIN [Suspect]
     Active Substance: LEVOFLOXACIN
     Indication: Vulvovaginal discomfort
     Dosage: 500 MILLIGRAM DAILY; (TAKEN WITHOUT DAIRY);
     Route: 065
     Dates: start: 20190520, end: 20190527

REACTIONS (16)
  - Medication error [Unknown]
  - Eye pain [Recovered/Resolved]
  - Limb discomfort [Unknown]
  - Asthenia [Unknown]
  - Burning sensation [Unknown]
  - Photophobia [Unknown]
  - Headache [Unknown]
  - Asthenia [Unknown]
  - Dysphagia [Unknown]
  - Eructation [Unknown]
  - Nausea [Not Recovered/Not Resolved]
  - Heart rate irregular [Not Recovered/Not Resolved]
  - Skin atrophy [Unknown]
  - Abdominal discomfort [Unknown]
  - Abnormal loss of weight [Unknown]
  - Muscle twitching [Unknown]

NARRATIVE: CASE EVENT DATE: 20190526
